FAERS Safety Report 8762607 (Version 1)
Quarter: 2012Q4

REPORT INFORMATION
  Report Type: 
  Country: JP (occurrence: JP)
  Receive Date: 20120830
  Receipt Date: 20120830
  Transmission Date: 20130627
  Serious: Yes (Other)
  Sender: FDA-Public Use
  Company Number: JP-BAXTER-2012BAX015244

PATIENT
  Age: 41 Year
  Sex: Female

DRUGS (15)
  1. KIOVIG HUMAN NORMAL IMMUNOGLOBULIN (IVIG) 10% [Suspect]
     Indication: HEMOPHAGOCYTIC SYNDROME
  2. KIOVIG HUMAN NORMAL IMMUNOGLOBULIN (IVIG) 10% [Suspect]
     Indication: SLE
  3. KIOVIG HUMAN NORMAL IMMUNOGLOBULIN (IVIG) 10% [Suspect]
     Indication: OFF LABEL USE
  4. PREDNISOLONE [Suspect]
     Indication: HEMOPHAGOCYTIC SYNDROME
     Dosage: REDUCED TO 5 MG/DAY
     Dates: start: 200807
  5. PREDNISOLONE [Suspect]
     Indication: SLE
  6. PREDNISOLONE [Suspect]
  7. PREDNISOLONE [Suspect]
  8. CYCLOSPORINE [Suspect]
     Indication: HEMOPHAGOCYTIC SYNDROME
     Dosage: GRADUALLY REDUCED AND DISCONTINUED
     Dates: start: 200807
  9. CYCLOSPORINE [Suspect]
     Indication: SLE
  10. CYCLOSPORINE [Suspect]
  11. METHYLPREDNISOLONE [Suspect]
     Indication: HEMOPHAGOCYTIC SYNDROME
  12. METHYLPREDNISOLONE [Suspect]
     Indication: SLE
  13. METHOTREXATE [Suspect]
     Indication: HEMOPHAGOCYTIC SYNDROME
  14. METHOTREXATE [Suspect]
     Indication: SLE
  15. HEPARIN LMW [Concomitant]
     Indication: DISSEMINATED INTRAVASCULAR COAGULATION
     Dosage: 4000 UNITS

REACTIONS (1)
  - Drug ineffective [Recovered/Resolved]
